FAERS Safety Report 10133404 (Version 1)
Quarter: 2014Q2

REPORT INFORMATION
  Report Type: Spontaneous
  Country: IT (occurrence: IT)
  Receive Date: 20140428
  Receipt Date: 20140428
  Transmission Date: 20141212
  Serious: Yes (Hospitalization)
  Sender: FDA-Public Use
  Company Number: IT-ELI_LILLY_AND_COMPANY-IT201404007207

PATIENT
  Age: 86 Year
  Sex: Female

DRUGS (7)
  1. HUMULIN REGULAR [Suspect]
     Indication: INSULIN-REQUIRING TYPE 2 DIABETES MELLITUS
     Dosage: 44 IU, QD
     Route: 058
     Dates: start: 20130601, end: 20131221
  2. NORVASC [Concomitant]
  3. TIKLID [Concomitant]
  4. TOP-NITRO [Concomitant]
  5. LANTUS [Concomitant]
  6. LANSOX [Concomitant]
  7. EUTIROX [Concomitant]

REACTIONS (2)
  - Transient ischaemic attack [Recovered/Resolved]
  - Hypoglycaemia [Recovered/Resolved]
